FAERS Safety Report 10762304 (Version 1)
Quarter: 2015Q1

REPORT INFORMATION
  Report Type: Spontaneous
  Country: US (occurrence: US)
  Receive Date: 20150204
  Receipt Date: 20150204
  Transmission Date: 20150721
  Serious: Yes (Death)
  Sender: FDA-Public Use
  Company Number: US-PERRIGO-15US001061

PATIENT
  Age: 18 Year
  Sex: Female

DRUGS (4)
  1. OXYMORPHONE [Suspect]
     Active Substance: OXYMORPHONE
     Indication: DRUG ABUSE
     Dosage: UNKNOWN,UNKNOWN
     Route: 065
  2. MARIJUANA [Suspect]
     Active Substance: CANNABIS SATIVA SUBSP. INDICA TOP
     Indication: PRODUCT USED FOR UNKNOWN INDICATION
     Dosage: UNKNOWN,UNKNOWN
     Route: 065
  3. LORAZEPAM CONCENTRATE RX 2 MG/ML 1J9 [Suspect]
     Active Substance: LORAZEPAM
     Indication: DRUG ABUSE
     Dosage: UNKNOWN,UNKNOWN
     Route: 065
  4. ALPRAZOLAM. [Suspect]
     Active Substance: ALPRAZOLAM
     Indication: PRODUCT USED FOR UNKNOWN INDICATION
     Dosage: UNKNOWN,UNKNOWN
     Route: 065

REACTIONS (1)
  - Death [Fatal]
